FAERS Safety Report 17683323 (Version 1)
Quarter: 2020Q2

REPORT INFORMATION
  Report Type: Other
  Country: DE (occurrence: DE)
  Receive Date: 20200420
  Receipt Date: 20200420
  Transmission Date: 20200714
  Serious: No
  Sender: FDA-Public Use
  Company Number: DE-LUPIN PHARMACEUTICALS INC.-2020-01223

PATIENT
  Age: 63 Year
  Sex: Female
  Weight: 106 kg

DRUGS (2)
  1. ZIPRASIDONE HYDROCHLORIDE. [Suspect]
     Active Substance: ZIPRASIDONE HYDROCHLORIDE
     Indication: SCHIZOPHRENIA
     Dosage: 60 MILLIGRAM, UNK
     Route: 048
     Dates: start: 20150622, end: 20190722
  2. QUILONORM [LITHIUM CARBONATE] [Concomitant]
     Active Substance: LITHIUM CARBONATE
     Indication: SCHIZOPHRENIA
     Dosage: 2 DOSAGE FORM, QD ( DF DOSAGE FORM EVERY DAYS 2 SEPARATED DOSES)
     Route: 048
     Dates: start: 20120302

REACTIONS (1)
  - Hypogeusia [Recovering/Resolving]

NARRATIVE: CASE EVENT DATE: 201812
